FAERS Safety Report 7786528-5 (Version None)
Quarter: 2011Q3

REPORT INFORMATION
  Report Type: 
  Country: None (occurrence: None)
  Receive Date: 20110929
  Receipt Date: 20110928
  Transmission Date: 20111222
  Serious: Yes (Other)
  Sender: FDA-Public Use
  Company Number: CA-GLAXOSMITHKLINE-A0945202A

PATIENT
  Sex: Female
  Weight: 77.3 kg

DRUGS (8)
  1. RED CLOVER [Concomitant]
  2. RHUBARB [Concomitant]
  3. AROMASIN [Suspect]
     Indication: PRODUCT USED FOR UNKNOWN INDICATION
     Dosage: 25MG PER DAY
     Route: 065
  4. GARLIC PREPARATION [Concomitant]
     Route: 061
  5. GALIUM APARINE [Concomitant]
  6. DANDELION ROOT [Concomitant]
  7. ADVAIR DISKUS 100/50 [Suspect]
     Indication: PULMONARY FIBROSIS
     Dosage: 1PUFF TWICE PER DAY
     Route: 055
     Dates: start: 20060101
  8. SLIPPERY ELM BARK [Concomitant]

REACTIONS (5)
  - MEMORY IMPAIRMENT [None]
  - PNEUMONIA [None]
  - PYREXIA [None]
  - PRODUCTIVE COUGH [None]
  - PRODUCT QUALITY ISSUE [None]
